FAERS Safety Report 13387108 (Version 1)
Quarter: 2017Q1

REPORT INFORMATION
  Report Type: Spontaneous
  Country: US (occurrence: US)
  Receive Date: 20170330
  Receipt Date: 20170330
  Transmission Date: 20170429
  Serious: No
  Sender: FDA-Public Use
  Company Number: US-PERRIGO-16US013853

PATIENT
  Age: 79 Year
  Sex: Female

DRUGS (4)
  1. CICLOPIROX. [Suspect]
     Active Substance: CICLOPIROX
     Indication: OFF LABEL USE
     Dosage: UNKNOWN, 4 TIMES WEEKLY
     Route: 061
     Dates: start: 201602
  2. TACROLIMUS. [Concomitant]
     Active Substance: TACROLIMUS
     Indication: ALOPECIA
     Dosage: UNKNOWN, THREE TIMES WEEKLY
     Route: 061
     Dates: start: 20160211
  3. AMLODIPINE [Concomitant]
     Active Substance: AMLODIPINE BESYLATE
     Indication: BLOOD PRESSURE ABNORMAL
     Dosage: 5 MG, QD
     Route: 065
     Dates: start: 2012
  4. LISINOPRIL. [Concomitant]
     Active Substance: LISINOPRIL
     Indication: BLOOD PRESSURE ABNORMAL
     Dosage: 40 MG, QD
     Route: 065
     Dates: start: 2008

REACTIONS (2)
  - Off label use [Unknown]
  - No adverse event [Unknown]

NARRATIVE: CASE EVENT DATE: 201602
